FAERS Safety Report 6555106-8 (Version None)
Quarter: 2010Q1

REPORT INFORMATION
  Report Type: 
  Country: None (occurrence: None)
  Receive Date: 20100126
  Receipt Date: 20100126
  Transmission Date: 20100710
  Serious: Yes (Disabling, Other)
  Sender: FDA-Public Use
  Company Number: None

PATIENT
  Age: 61 Year
  Sex: Female
  Weight: 136.0791 kg

DRUGS (2)
  1. LAVOQUIN [Suspect]
     Indication: PNEUMONIA
     Dosage: 750 1DAILY IV; 750 1 DAILY ORAL
     Route: 042
     Dates: start: 20091123, end: 20091126
  2. LAVOQUIN [Suspect]
     Indication: PNEUMONIA
     Dosage: 750 1DAILY IV; 750 1 DAILY ORAL
     Route: 042
     Dates: start: 20091127, end: 20091128

REACTIONS (5)
  - JOINT STIFFNESS [None]
  - PAIN [None]
  - PAIN IN EXTREMITY [None]
  - SWELLING [None]
  - TENDON INJURY [None]
